FAERS Safety Report 24262594 (Version 5)
Quarter: 2025Q1

REPORT INFORMATION
  Report Type: Report from Study
  Country: CA (occurrence: CA)
  Receive Date: 20240829
  Receipt Date: 20250201
  Transmission Date: 20250409
  Serious: Yes (Hospitalization)
  Sender: ROCHE
  Company Number: CA-ROCHE-10000059658

PATIENT
  Sex: Female

DRUGS (1)
  1. OCREVUS [Suspect]
     Active Substance: OCRELIZUMAB
     Indication: Primary progressive multiple sclerosis
     Dosage: 300 MG AT DAY 0 AND 14, THEN 600 MG EVERY 6 MONTH
     Route: 040
     Dates: start: 20240328

REACTIONS (12)
  - Headache [Unknown]
  - Dizziness [Recovering/Resolving]
  - Fatigue [Unknown]
  - Oropharyngeal pain [Not Recovered/Not Resolved]
  - Secretion discharge [Not Recovered/Not Resolved]
  - Muscular weakness [Unknown]
  - Anaemia [Unknown]
  - Urinary tract infection [Unknown]
  - Joint swelling [Unknown]
  - Peripheral swelling [Unknown]
  - Fall [Unknown]
  - Ligament rupture [Unknown]
